FAERS Safety Report 15048912 (Version 1)
Quarter: 2018Q2

REPORT INFORMATION
  Report Type: Spontaneous
  Country: US (occurrence: US)
  Receive Date: 20180622
  Receipt Date: 20180622
  Transmission Date: 20180711
  Serious: Yes (Other)
  Sender: FDA-Public Use
  Company Number: US-ASTRAZENECA-2018SE80285

PATIENT
  Age: 743 Month
  Sex: Male
  Weight: 104.3 kg

DRUGS (4)
  1. SYMBICORT [Suspect]
     Active Substance: BUDESONIDE\FORMOTEROL FUMARATE DIHYDRATE
     Indication: ASTHMA
     Dosage: 160/4.5, ONE INHALATION TWO TIMES A DAY(PATIENT WAS TAKING SYMBICORT ONCE IN THE MORNING AND ONCE...
     Route: 055
  2. SYNTHROID [Concomitant]
     Active Substance: LEVOTHYROXINE SODIUM
     Indication: THYROID DISORDER
     Dosage: 1.75, DAILY
     Route: 048
  3. ALBUTEROL. [Concomitant]
     Active Substance: ALBUTEROL
     Route: 065
  4. LORATADINE. [Concomitant]
     Active Substance: LORATADINE
     Indication: HYPERSENSITIVITY
     Dosage: DAILY
     Route: 048
     Dates: start: 2016

REACTIONS (12)
  - Balance disorder [Unknown]
  - Ear discomfort [Unknown]
  - Inner ear disorder [Not Recovered/Not Resolved]
  - Exposure to mould [Unknown]
  - Pneumonitis [Unknown]
  - Middle ear effusion [Not Recovered/Not Resolved]
  - Musculoskeletal stiffness [Not Recovered/Not Resolved]
  - Off label use [Unknown]
  - Myalgia [Unknown]
  - Immune system disorder [Unknown]
  - Dizziness [Unknown]
  - Ear pain [Unknown]

NARRATIVE: CASE EVENT DATE: 201806
